FAERS Safety Report 6753228-X (Version None)
Quarter: 2010Q2

REPORT INFORMATION
  Report Type: 
  Country: None (occurrence: None)
  Receive Date: 20100603
  Receipt Date: 20100527
  Transmission Date: 20101027
  Serious: Yes (Other)
  Sender: FDA-Public Use
  Company Number: IE-ROXANE LABORATORIES, INC.-2010-RO-00639RO

PATIENT
  Age: 17 Month
  Sex: Male

DRUGS (6)
  1. DEXAMETHASONE [Suspect]
     Indication: ACUTE LYMPHOCYTIC LEUKAEMIA
  2. METHOTREXATE [Suspect]
     Indication: ACUTE LYMPHOCYTIC LEUKAEMIA
     Route: 037
  3. FLUCONAZOLE [Suspect]
     Indication: CANDIDIASIS
     Route: 042
  4. DAUNORUBICIN HCL [Suspect]
     Indication: ACUTE LYMPHOCYTIC LEUKAEMIA
  5. PEGYLATED ASPARAGINASE [Suspect]
     Indication: ACUTE LYMPHOCYTIC LEUKAEMIA
  6. VINCRISTINE [Suspect]
     Indication: ACUTE LYMPHOCYTIC LEUKAEMIA

REACTIONS (8)
  - DYSPHAGIA [None]
  - FEBRILE NEUTROPENIA [None]
  - OESOPHAGEAL STENOSIS [None]
  - ORAL CANDIDIASIS [None]
  - PARAOESOPHAGEAL ABSCESS [None]
  - SKIN CANDIDA [None]
  - SYSTEMIC CANDIDA [None]
  - VOMITING [None]
